FAERS Safety Report 7190603-6 (Version None)
Quarter: 2010Q4

REPORT INFORMATION
  Report Type: 
  Country: None (occurrence: None)
  Receive Date: 20101221
  Receipt Date: 20101221
  Transmission Date: 20110411
  Serious: Yes (Hospitalization)
  Sender: FDA-Public Use
  Company Number: None

PATIENT
  Age: 84 Year
  Sex: Female
  Weight: 113.4 kg

DRUGS (6)
  1. DABIGATRON 150 MG BOEHRINGER INGELHEIM [Suspect]
     Indication: ATRIAL FIBRILLATION
     Dosage: 150 MG BID PO
     Route: 048
     Dates: start: 20101217, end: 20101218
  2. DABIGATRON 150 MG BOEHRINGER INGELHEIM [Suspect]
     Indication: CARDIAC PACEMAKER INSERTION
     Dosage: 150 MG BID PO
     Route: 048
     Dates: start: 20101217, end: 20101218
  3. SOTALOL [Concomitant]
  4. FUROSEMIDE [Concomitant]
  5. LIPITOR [Concomitant]
  6. HUMULIN R [Concomitant]

REACTIONS (1)
  - RECTAL HAEMORRHAGE [None]
